FAERS Safety Report 21003190 (Version 2)
Quarter: 2023Q1

REPORT INFORMATION
  Report Type: Report from Study
  Country: US (occurrence: US)
  Receive Date: 20220624
  Receipt Date: 20230207
  Transmission Date: 20230418
  Serious: Yes (Hospitalization, Other)
  Sender: FDA-Public Use
  Company Number: US-TAKEDA-2022TUS040971

PATIENT
  Sex: Male
  Weight: 92.971 kg

DRUGS (24)
  1. HUMAN IMMUNOGLOBULIN G\HYALURONIDASE RECOMBINANT HUMAN [Suspect]
     Active Substance: HUMAN IMMUNOGLOBULIN G\HYALURONIDASE RECOMBINANT HUMAN
     Indication: Primary immunodeficiency syndrome
     Dosage: 420 MILLILITER, MONTHLY
     Route: 065
  2. HUMAN IMMUNOGLOBULIN G\HYALURONIDASE RECOMBINANT HUMAN [Suspect]
     Active Substance: HUMAN IMMUNOGLOBULIN G\HYALURONIDASE RECOMBINANT HUMAN
     Indication: Hypogammaglobulinaemia
     Dosage: 30 GRAM, Q3WEEKS
     Route: 058
     Dates: start: 20160606
  3. PFIZER-BIONTECH COVID-19 VACCINE [Suspect]
     Active Substance: TOZINAMERAN
     Indication: COVID-19 immunisation
     Route: 065
  4. DIPHENHYDRAMINE [Concomitant]
     Active Substance: DIPHENHYDRAMINE
  5. ESOMEPRAZOLE MAGNESIUM [Concomitant]
     Active Substance: ESOMEPRAZOLE MAGNESIUM
  6. GLIPIZIDE [Concomitant]
     Active Substance: GLIPIZIDE
  7. JARDIANCE [Concomitant]
     Active Substance: EMPAGLIFLOZIN
  8. EPINEPHRINE [Concomitant]
     Active Substance: EPINEPHRINE
  9. NURTEC ODT [Concomitant]
     Active Substance: RIMEGEPANT SULFATE
  10. RESTASIS [Concomitant]
     Active Substance: CYCLOSPORINE
  11. ACETAMINOPHEN [Concomitant]
     Active Substance: ACETAMINOPHEN
  12. AIMOVIG [Concomitant]
     Active Substance: ERENUMAB-AOOE
  13. TRINTELLIX [Concomitant]
     Active Substance: VORTIOXETINE HYDROBROMIDE
  14. TRULICITY [Concomitant]
     Active Substance: DULAGLUTIDE
  15. SODIUM BICARBONATE [Concomitant]
     Active Substance: SODIUM BICARBONATE
  16. SODIUM CHLORIDE [Concomitant]
     Active Substance: SODIUM CHLORIDE
  17. LEVOTHYROXINE SODIUM [Concomitant]
     Active Substance: LEVOTHYROXINE SODIUM
  18. BELSOMRA [Concomitant]
     Active Substance: SUVOREXANT
  19. CHLORZOXAZONE [Concomitant]
     Active Substance: CHLORZOXAZONE
  20. LINZESS [Concomitant]
     Active Substance: LINACLOTIDE
  21. PREGABALIN [Concomitant]
     Active Substance: PREGABALIN
  22. Lmx [Concomitant]
  23. PANTOPRAZOLE SODIUM [Concomitant]
     Active Substance: PANTOPRAZOLE SODIUM
  24. TADALAFIL [Concomitant]
     Active Substance: TADALAFIL

REACTIONS (3)
  - COVID-19 pneumonia [Unknown]
  - Insurance issue [Unknown]
  - Product use issue [Unknown]
